FAERS Safety Report 6909005-X (Version None)
Quarter: 2010Q3

REPORT INFORMATION
  Report Type: 
  Country: None (occurrence: None)
  Receive Date: 20100805
  Receipt Date: 20100729
  Transmission Date: 20110219
  Serious: Yes (Hospitalization)
  Sender: FDA-Public Use
  Company Number: US-GILEAD-2010-0030789

PATIENT
  Age: 54 Year
  Sex: Female
  Weight: 56.75 kg

DRUGS (22)
  1. LETAIRIS [Suspect]
     Indication: PULMONARY ARTERIAL HYPERTENSION
     Route: 048
     Dates: start: 20080327
  2. REMODULIN [Concomitant]
     Indication: PULMONARY ARTERIAL HYPERTENSION
  3. REVATIO [Concomitant]
  4. OXYGEN [Concomitant]
  5. NITRO-BID [Concomitant]
  6. ZAROXOLYN [Concomitant]
  7. PROCRIT [Concomitant]
  8. ASPIRIN [Concomitant]
  9. AVELOX [Concomitant]
  10. ACYCLOVIR [Concomitant]
  11. VALTREX [Concomitant]
  12. ALLEGRA [Concomitant]
  13. PENICILLIN VK [Concomitant]
  14. TOBRADEX [Concomitant]
  15. CLOBEX [Concomitant]
  16. PLETAL [Concomitant]
  17. DEMADEX [Concomitant]
  18. ALPRAZOLAM [Concomitant]
  19. NEXIUM [Concomitant]
  20. KERALAC [Concomitant]
  21. CALCIUM 500 + D [Concomitant]
  22. MULTI-VITAMIN [Concomitant]

REACTIONS (1)
  - VIRAL INFECTION [None]
